FAERS Safety Report 6123194-9 (Version None)
Quarter: 2009Q1

REPORT INFORMATION
  Report Type: 
  Country: None (occurrence: None)
  Receive Date: 20090318
  Receipt Date: 20090311
  Transmission Date: 20090719
  Serious: Yes (Hospitalization, Other)
  Sender: FDA-Public Use
  Company Number: PHHY2008ZA28683

PATIENT
  Sex: Male
  Weight: 82 kg

DRUGS (2)
  1. VOLTAREN [Suspect]
     Indication: FATIGUE
     Dosage: 50 MG
     Route: 048
     Dates: start: 20040301, end: 20040301
  2. VOLTAREN [Suspect]
     Indication: BACK INJURY
     Dosage: 50 MG, ONCE/SINGLE
     Route: 048
     Dates: start: 20081116, end: 20081116

REACTIONS (4)
  - HAEMATURIA [None]
  - HAEMORRHAGE [None]
  - PROSTATIC HAEMORRHAGE [None]
  - URINARY RETENTION [None]
